FAERS Safety Report 6586321-5 (Version None)
Quarter: 2010Q1

REPORT INFORMATION
  Report Type: 
  Country: None (occurrence: None)
  Receive Date: 20100217
  Receipt Date: 20100215
  Transmission Date: 20100710
  Serious: Yes (Hospitalization)
  Sender: FDA-Public Use
  Company Number: ES-MERCK-1002ESP00046

PATIENT
  Age: 69 Year
  Sex: Male

DRUGS (8)
  1. ZOCOR [Suspect]
     Indication: DYSLIPIDAEMIA
     Route: 048
     Dates: start: 20070101, end: 20091003
  2. COROPRES [Concomitant]
     Indication: HYPERTENSION
     Route: 048
     Dates: start: 20091005
  3. LEVEMIR [Concomitant]
     Indication: DIABETES MELLITUS
     Route: 065
     Dates: start: 20091005
  4. MINITRAN [Concomitant]
     Indication: ANGINA PECTORIS
     Route: 061
     Dates: start: 20091005
  5. NORVASC [Concomitant]
     Indication: HYPERTENSION
     Route: 048
     Dates: start: 20091005
  6. VASOTEC [Concomitant]
     Indication: HYPERTENSION
     Route: 048
     Dates: start: 20091005
  7. SERETIDE [Concomitant]
     Indication: CHRONIC OBSTRUCTIVE PULMONARY DISEASE
     Route: 065
     Dates: start: 20091005
  8. SPIRIVA [Concomitant]
     Indication: CHRONIC OBSTRUCTIVE PULMONARY DISEASE
     Route: 065
     Dates: start: 20091005

REACTIONS (1)
  - PERIPHERAL SENSORIMOTOR NEUROPATHY [None]
